FAERS Safety Report 11794770 (Version 1)
Quarter: 2015Q4

REPORT INFORMATION
  Report Type: Spontaneous
  Country: DE (occurrence: DE)
  Receive Date: 20151202
  Receipt Date: 20151202
  Transmission Date: 20160305
  Serious: Yes (Congenital Anomaly)
  Sender: FDA-Public Use
  Company Number: DE-TEVA-611895GER

PATIENT
  Age: 1 Day
  Sex: Male

DRUGS (6)
  1. CLEXANE 40 [Concomitant]
     Indication: FACTOR V LEIDEN MUTATION
     Dosage: 40 MILLIGRAM DAILY;
     Route: 064
     Dates: start: 20150116, end: 20150329
  2. MISOPROSTOL. [Concomitant]
     Active Substance: MISOPROSTOL
     Indication: LABOUR INDUCTION
     Route: 064
  3. PRESINOL [Concomitant]
     Active Substance: METHYLDOPA
     Indication: HYPERTENSION
     Route: 064
     Dates: start: 20150120, end: 20150329
  4. SEROQUEL XR [Suspect]
     Active Substance: QUETIAPINE FUMARATE
     Indication: BIPOLAR DISORDER
     Dosage: 250 [MG/D ]/ 1ST + 2ND TRIM: 250 MG. SINCE WK 35+5 REDUCTION
     Route: 064
     Dates: start: 20140618, end: 20150317
  5. METOPROLOLSUCCINAT RET. [Suspect]
     Active Substance: METOPROLOL SUCCINATE
     Indication: HYPERTENSION
     Dosage: 47.5 MILLIGRAM DAILY;
     Route: 064
     Dates: start: 20140618, end: 20150112
  6. FEMIBION SCHWANGERSCHAFT 1 [Concomitant]
     Indication: PROPHYLAXIS OF NEURAL TUBE DEFECT
     Dosage: .8 MILLIGRAM DAILY;
     Route: 064
     Dates: start: 20140618, end: 20150329

REACTIONS (7)
  - Atrial septal defect [Not Recovered/Not Resolved]
  - Infantile haemangioma [Unknown]
  - Pulmonary artery stenosis [Not Recovered/Not Resolved]
  - Maternal drugs affecting foetus [None]
  - Haemangioma congenital [Recovering/Resolving]
  - Foetal exposure during pregnancy [Unknown]
  - Caesarean section [None]

NARRATIVE: CASE EVENT DATE: 20150329
